FAERS Safety Report 7600152-6 (Version None)
Quarter: 2011Q3

REPORT INFORMATION
  Report Type: 
  Country: None (occurrence: None)
  Receive Date: 20110711
  Receipt Date: 20110629
  Transmission Date: 20111222
  Serious: Yes (Hospitalization)
  Sender: FDA-Public Use
  Company Number: PHHY2011BR43636

PATIENT
  Age: 89 Year
  Sex: Female

DRUGS (2)
  1. EXELON [Suspect]
     Dosage: 4.5 MG, UNK
  2. EXELON [Suspect]
     Dosage: 6 MG, 1 CAPSULE IN THE MORNING AND OTHER TABLET AT NIGHT
     Dates: start: 20110514

REACTIONS (7)
  - FEELING COLD [None]
  - URINARY INCONTINENCE [None]
  - VOMITING [None]
  - ALTERED STATE OF CONSCIOUSNESS [None]
  - GASTROINTESTINAL MOTILITY DISORDER [None]
  - BLOOD PRESSURE INCREASED [None]
  - DIZZINESS [None]
